FAERS Safety Report 5591389-9 (Version None)
Quarter: 2008Q1

REPORT INFORMATION
  Report Type: 
  Country: None (occurrence: None)
  Receive Date: 20080111
  Receipt Date: 20080111
  Transmission Date: 20080703
  Serious: Yes (Other)
  Sender: FDA-Public Use
  Company Number: None

PATIENT
  Age: 45 Year
  Sex: Female
  Weight: 77.1115 kg

DRUGS (1)
  1. PAXIL [Suspect]
     Indication: ANXIETY
     Dosage: 20 MG  DAILY
     Dates: start: 20040101

REACTIONS (3)
  - BLOOD GLUCOSE INCREASED [None]
  - PANCREATIC DISORDER [None]
  - VERTIGO [None]
